FAERS Safety Report 6185347-3 (Version None)
Quarter: 2009Q2

REPORT INFORMATION
  Report Type: 
  Country: None (occurrence: None)
  Receive Date: 20090507
  Receipt Date: 20090421
  Transmission Date: 20091009
  Serious: Yes (Hospitalization)
  Sender: FDA-Public Use
  Company Number: 8045490

PATIENT
  Age: 21 Year
  Sex: Female

DRUGS (5)
  1. PREDNISOLONE [Suspect]
     Indication: PROTEINURIA
     Dosage: 1 MG/KG
  2. PREDNISOLONE [Suspect]
     Indication: PROTEINURIA
     Dosage: 40 MG /D
  3. PREDNISOLONE [Suspect]
     Indication: PROTEINURIA
     Dosage: 8 MG /D
  4. STEROIDS [Concomitant]
  5. METHYLDOPA [Concomitant]

REACTIONS (3)
  - DRUG EXPOSURE DURING PREGNANCY [None]
  - INTRA-UTERINE DEATH [None]
  - NEPHROTIC SYNDROME [None]
